FAERS Safety Report 11216236 (Version 1)
Quarter: 2015Q2

REPORT INFORMATION
  Report Type: Spontaneous
  Country: US (occurrence: US)
  Receive Date: 20150624
  Receipt Date: 20150624
  Transmission Date: 20150821
  Serious: Yes (Other)
  Sender: FDA-Public Use
  Company Number: US-SA-2015SA088417

PATIENT
  Age: 48 Year
  Sex: Female

DRUGS (1)
  1. ASPERCREME NOS [Suspect]
     Active Substance: MENTHOL\TROLAMINE SALICYLATE
     Route: 065
     Dates: start: 2012

REACTIONS (3)
  - Pain [Not Recovered/Not Resolved]
  - Carpal tunnel syndrome [Unknown]
  - Wrist surgery [Unknown]

NARRATIVE: CASE EVENT DATE: 2012
